FAERS Safety Report 5939644-4 (Version None)
Quarter: 2008Q4

REPORT INFORMATION
  Report Type: 
  Country: None (occurrence: None)
  Receive Date: 20081030
  Receipt Date: 20081030
  Transmission Date: 20090506
  Serious: Yes (Other)
  Sender: FDA-Public Use
  Company Number: None

PATIENT
  Sex: Female
  Weight: 73.0291 kg

DRUGS (2)
  1. TRIAMCINOLONE ACETONIDE [Suspect]
     Indication: DERMATITIS CONTACT
     Dosage: U.S.P. 0.1% 2-3X DAILY TOPICAL
     Route: 061
     Dates: start: 20080929, end: 20081001
  2. TRIAMCINOLONE ACETONIDE [Suspect]
     Indication: MYCOTIC ALLERGY
     Dosage: U.S.P. 0.1% 2-3X DAILY TOPICAL
     Route: 061
     Dates: start: 20080929, end: 20081001

REACTIONS (3)
  - HEADACHE [None]
  - HYPERSENSITIVITY [None]
  - RASH [None]
